FAERS Safety Report 10144082 (Version 2)
Quarter: 2014Q2

REPORT INFORMATION
  Report Type: Spontaneous
  Country: JP (occurrence: JP)
  Receive Date: 20140430
  Receipt Date: 20140506
  Transmission Date: 20141212
  Serious: No
  Sender: FDA-Public Use
  Company Number: JP-009507513-1404JPN014731

PATIENT
  Age: 70 Year
  Sex: Female

DRUGS (3)
  1. JANUVIA TABLETS 100MG [Suspect]
     Indication: DIABETES MELLITUS
     Dosage: 50 MG, QD
     Route: 048
  2. PAMILCON [Concomitant]
     Indication: DIABETES MELLITUS
     Dosage: 2.5 MG, QD
     Route: 048
  3. PAMILCON [Concomitant]
     Dosage: 6.25 MG, DIVIDED DOSE FREQUENCY UNKNOWN
     Route: 048

REACTIONS (3)
  - Malaise [Recovered/Resolved]
  - Muscle twitching [Recovered/Resolved]
  - Vomiting [Recovered/Resolved]
